FAERS Safety Report 15080216 (Version 1)
Quarter: 2018Q2

REPORT INFORMATION
  Report Type: Spontaneous
  Country: US (occurrence: US)
  Receive Date: 20180627
  Receipt Date: 20180627
  Transmission Date: 20180711
  Serious: No
  Sender: FDA-Public Use
  Company Number: PHEH2018US025020

PATIENT
  Age: 62 Year
  Sex: Female
  Weight: 86.17 kg

DRUGS (1)
  1. COSENTYX [Suspect]
     Active Substance: SECUKINUMAB
     Indication: PRODUCT USED FOR UNKNOWN INDICATION
     Dosage: UNK
     Route: 065

REACTIONS (4)
  - Lymphopenia [Unknown]
  - T-lymphocyte count decreased [Unknown]
  - CD4 lymphocytes decreased [Unknown]
  - Infection [Unknown]

NARRATIVE: CASE EVENT DATE: 20180226
